FAERS Safety Report 9775442 (Version 1)
Quarter: 2013Q4

REPORT INFORMATION
  Report Type: Spontaneous
  Country: US (occurrence: US)
  Receive Date: 20131220
  Receipt Date: 20131220
  Transmission Date: 20140711
  Serious: No
  Sender: FDA-Public Use
  Company Number: US-GALDERMA-US13003448

PATIENT
  Age: 59 Year
  Sex: Male

DRUGS (3)
  1. MIRVASO (BRIMONIDINE) TOPICAL GEL, 0.33% [Suspect]
     Indication: ROSACEA
     Route: 061
     Dates: start: 201309, end: 201309
  2. DOXYCYCLINE (DOXYCYCLINE) [Concomitant]
     Indication: ROSACEA
     Route: 048
  3. METROGEL  (METRONIDAZOLE) GEL, 1% [Concomitant]
     Indication: ROSACEA
     Route: 061

REACTIONS (3)
  - Rebound effect [Recovering/Resolving]
  - Erythema [Recovering/Resolving]
  - Dermatitis [Recovering/Resolving]
